FAERS Safety Report 7334143-X (Version None)
Quarter: 2011Q1

REPORT INFORMATION
  Report Type: 
  Country: None (occurrence: None)
  Receive Date: 20110307
  Receipt Date: 20110222
  Transmission Date: 20110831
  Serious: Yes (Death)
  Sender: FDA-Public Use
  Company Number: US-CELGENEUS-163-21880-11010682

PATIENT
  Sex: Male

DRUGS (7)
  1. REVLIMID [Suspect]
     Indication: MULTIPLE MYELOMA
     Dosage: 10 MILLIGRAM
     Route: 048
     Dates: start: 20101117
  2. DOXIL [Concomitant]
     Dosage: 40 MILLIGRAM/SQ. METER
     Route: 065
     Dates: start: 20101112
  3. ACYCLOVIR [Concomitant]
     Indication: HERPES ZOSTER
     Route: 065
  4. ALLOPURINOL [Concomitant]
     Indication: BLOOD URIC ACID INCREASED
     Dosage: 100 MILLIGRAM
     Route: 065
  5. PLAVIX [Concomitant]
     Indication: CORONARY ARTERY DISEASE
     Dosage: 75 MILLIGRAM
     Route: 065
  6. DOXIL [Concomitant]
     Dosage: 40 MILLIGRAM/SQ. METER
     Route: 065
     Dates: start: 20101210
  7. VALTREX [Concomitant]
     Indication: HERPES ZOSTER
     Route: 065

REACTIONS (1)
  - PNEUMONIA [None]
